FAERS Safety Report 11127086 (Version 3)
Quarter: 2015Q3

REPORT INFORMATION
  Report Type: Report from Study
  Country: US (occurrence: US)
  Receive Date: 20150521
  Receipt Date: 20150728
  Transmission Date: 20151125
  Serious: Yes (Hospitalization, Other)
  Sender: FDA-Public Use
  Company Number: US-ALXN-A201501728AA

PATIENT

DRUGS (1)
  1. SOLIRIS [Suspect]
     Active Substance: ECULIZUMAB
     Indication: HAEMOLYTIC URAEMIC SYNDROME
     Dosage: UNK UNK, Q2W
     Route: 042

REACTIONS (15)
  - Haemoglobin abnormal [Unknown]
  - Confusional state [Recovered/Resolved]
  - Platelet count abnormal [Unknown]
  - Inappropriate schedule of drug administration [Unknown]
  - Haemolysis [Unknown]
  - Platelet count decreased [Recovered/Resolved]
  - Palpitations [Unknown]
  - Deep vein thrombosis [Unknown]
  - Nausea [Recovered/Resolved]
  - Haemoglobin abnormal [Recovered/Resolved]
  - Blood lactate dehydrogenase abnormal [Unknown]
  - Gastrointestinal disorder [Recovered/Resolved]
  - Neoplasm malignant [Unknown]
  - Blood count abnormal [Unknown]
  - Fatigue [Unknown]

NARRATIVE: CASE EVENT DATE: 20150428
